FAERS Safety Report 18534682 (Version 1)
Quarter: 2020Q4

REPORT INFORMATION
  Report Type: Spontaneous
  Country: US (occurrence: US)
  Receive Date: 20201123
  Receipt Date: 20201123
  Transmission Date: 20210114
  Serious: Yes (Death)
  Sender: FDA-Public Use
  Company Number: US-PFIZER INC-2019335328

PATIENT
  Age: 63 Year
  Sex: Male

DRUGS (2)
  1. XALKORI [Suspect]
     Active Substance: CRIZOTINIB
     Indication: ADENOCARCINOMA OF COLON
     Dosage: 200 MG, 2X/DAY
     Route: 048
  2. XALKORI [Suspect]
     Active Substance: CRIZOTINIB
     Dosage: 400 MG, 2X/DAY (TAKE 2 CAPSULES BY MOUTH TWICE DAILY)
     Route: 048

REACTIONS (2)
  - Death [Fatal]
  - Off label use [Unknown]
